FAERS Safety Report 9587621 (Version 2)
Quarter: 2013Q4

REPORT INFORMATION
  Report Type: Spontaneous
  Country: CH (occurrence: CH)
  Receive Date: 20131003
  Receipt Date: 20131031
  Transmission Date: 20140711
  Serious: Yes (Death)
  Sender: FDA-Public Use
  Company Number: CH-BAYER-2013-119600

PATIENT
  Age: 70 Year
  Sex: Male

DRUGS (1)
  1. STIVARGA [Suspect]
     Indication: COLON CANCER METASTATIC
     Dosage: DAILY DOSE 80 MG
     Route: 048
     Dates: start: 201304, end: 20130705

REACTIONS (18)
  - Death [Fatal]
  - Paranasal sinus discomfort [Recovering/Resolving]
  - Epistaxis [Recovering/Resolving]
  - Palmar-plantar erythrodysaesthesia syndrome [Recovering/Resolving]
  - Pain in extremity [Recovering/Resolving]
  - Gait disturbance [Recovering/Resolving]
  - Local swelling [Recovering/Resolving]
  - Hypoaesthesia [None]
  - Tremor [Recovering/Resolving]
  - Dry mouth [None]
  - Gingival recession [None]
  - Alopecia [None]
  - Hypertension [Recovered/Resolved]
  - Heart rate increased [Recovered/Resolved]
  - Fatigue [None]
  - Aphonia [Recovering/Resolving]
  - Skin disorder [None]
  - Skin exfoliation [None]
